FAERS Safety Report 7926189-5 (Version None)
Quarter: 2011Q4

REPORT INFORMATION
  Report Type: 
  Country: None (occurrence: None)
  Receive Date: 20111118
  Receipt Date: 20110419
  Transmission Date: 20120403
  Serious: No
  Sender: FDA-Public Use
  Company Number: US-AMGEN-TCS406764

PATIENT
  Age: 56 Year
  Sex: Female
  Weight: 83.9 kg

DRUGS (4)
  1. METHOTREXATE [Concomitant]
     Dosage: 12.5 MG, QWK
     Route: 048
     Dates: start: 20020228
  2. NAPROXEN [Concomitant]
     Dosage: UNK
     Dates: start: 20100719
  3. FOLIC ACID [Concomitant]
     Dosage: UNK
     Dates: start: 20030116
  4. ENBREL [Suspect]
     Indication: RHEUMATOID ARTHRITIS
     Dosage: 25 MG, QWK
     Route: 058
     Dates: start: 20011201

REACTIONS (11)
  - INJECTION SITE PAIN [None]
  - INJECTION SITE HAEMATOMA [None]
  - PAIN [None]
  - INJECTION SITE PARAESTHESIA [None]
  - EAR INFECTION [None]
  - CONJUNCTIVITIS [None]
  - RESPIRATORY TRACT INFECTION [None]
  - INFECTION [None]
  - INJECTION SITE ANAESTHESIA [None]
  - BURNING SENSATION [None]
  - HERPES VIRUS INFECTION [None]
